FAERS Safety Report 8210958-0 (Version None)
Quarter: 2012Q1

REPORT INFORMATION
  Report Type: 
  Country: None (occurrence: None)
  Receive Date: 20120315
  Receipt Date: 20120307
  Transmission Date: 20120608
  Serious: Yes (Life-Threatening, Hospitalization, Disabling, Other)
  Sender: FDA-Public Use
  Company Number: US-ABBOTT-12P-163-0909726-03

PATIENT
  Sex: Female
  Weight: 54.48 kg

DRUGS (8)
  1. DOXEPIN HCL [Concomitant]
     Indication: ANXIETY
     Dates: start: 20090601
  2. COMMERCIAL HUMIRA [Concomitant]
     Indication: PSORIASIS
     Dates: start: 20090508
  3. ATENOLOL [Concomitant]
     Indication: HYPERTENSION
     Dates: start: 20080101
  4. HUMIRA [Suspect]
     Indication: PSORIASIS
     Route: 058
     Dates: start: 20091104, end: 20120224
  5. OLUX [Concomitant]
     Indication: PSORIASIS
     Route: 061
     Dates: start: 20041201
  6. TRIAMCINOLONE [Concomitant]
     Indication: PSORIASIS
     Route: 061
     Dates: start: 20041201
  7. CALCIPOTRIENE [Concomitant]
     Indication: PSORIASIS
     Route: 061
     Dates: start: 20041201
  8. ENALAPRIL MALEATE [Concomitant]
     Indication: HYPERTENSION
     Dates: start: 20100426

REACTIONS (2)
  - PNEUMONIA [None]
  - CARDIAC FAILURE CONGESTIVE [None]
